FAERS Safety Report 12778793 (Version 1)
Quarter: 2016Q3

REPORT INFORMATION
  Report Type: Spontaneous
  Country: US (occurrence: US)
  Receive Date: 20160926
  Receipt Date: 20160926
  Transmission Date: 20161109
  Serious: No
  Sender: FDA-Public Use
  Company Number: US-BAYER-2016-179316

PATIENT
  Age: 80 Year
  Sex: Female

DRUGS (3)
  1. LORAZEPAM. [Concomitant]
     Active Substance: LORAZEPAM
     Dosage: UNK
  2. MIRALAX [Suspect]
     Active Substance: POLYETHYLENE GLYCOL 3350
     Indication: GASTROINTESTINAL DISORDER
     Dosage: UNK, QD
     Route: 048
     Dates: start: 20160906
  3. CORRECTOL NOS [Suspect]
     Active Substance: BISACODYL OR DOCUSATE SODIUM
     Indication: GASTROINTESTINAL DISORDER
     Route: 048

REACTIONS (5)
  - Product use issue [Unknown]
  - Constipation [Unknown]
  - Abdominal discomfort [Unknown]
  - Decreased appetite [Unknown]
  - Infrequent bowel movements [Unknown]
